FAERS Safety Report 18250198 (Version 1)
Quarter: 2020Q3

REPORT INFORMATION
  Report Type: Report from Study
  Country: US (occurrence: US)
  Receive Date: 20200909
  Receipt Date: 20200909
  Transmission Date: 20201103
  Serious: Yes (Hospitalization)
  Sender: FDA-Public Use
  Company Number: US-JNJFOC-A-US2017-152638

PATIENT
  Age: 45 Year
  Sex: Female

DRUGS (16)
  1. ADCIRCA [Concomitant]
     Active Substance: TADALAFIL
  2. POTASSIUM [Concomitant]
     Active Substance: POTASSIUM
  3. TOPIRAMATE. [Concomitant]
     Active Substance: TOPIRAMATE
  4. RANITIDINE. [Concomitant]
     Active Substance: RANITIDINE
  5. CALCIUM [Concomitant]
     Active Substance: CALCIUM
  6. PROAIR HFA [Concomitant]
     Active Substance: ALBUTEROL SULFATE
  7. REMODULIN [Suspect]
     Active Substance: TREPROSTINIL
     Indication: PRODUCT USED FOR UNKNOWN INDICATION
  8. HYDROXYZINE [Concomitant]
     Active Substance: HYDROXYZINE HYDROCHLORIDE
  9. OXYCODONE/APAP [Concomitant]
     Active Substance: ACETAMINOPHEN\OXYCODONE HYDROCHLORIDE
  10. FLUOXETINE [Concomitant]
     Active Substance: FLUOXETINE HYDROCHLORIDE
  11. VITAMIN C [Concomitant]
     Active Substance: ASCORBIC ACID
  12. FLOVENT [Concomitant]
     Active Substance: FLUTICASONE PROPIONATE
  13. MONTELUKAST [Concomitant]
     Active Substance: MONTELUKAST SODIUM
  14. OPSUMIT [Suspect]
     Active Substance: MACITENTAN
     Indication: PULMONARY ARTERIAL HYPERTENSION
     Dosage: 10 MG, QD
     Route: 048
     Dates: start: 20170609
  15. FUROSEMIDE. [Concomitant]
     Active Substance: FUROSEMIDE
  16. COMBIVENT [Concomitant]
     Active Substance: ALBUTEROL SULFATE\IPRATROPIUM BROMIDE

REACTIONS (10)
  - Therapy change [Not Recovered/Not Resolved]
  - Headache [Not Recovered/Not Resolved]
  - Dyspnoea [Unknown]
  - Hospitalisation [Unknown]
  - Joint injury [Unknown]
  - Memory impairment [Unknown]
  - Condition aggravated [Unknown]
  - Inappropriate schedule of product administration [Unknown]
  - Nausea [Unknown]
  - Pain in extremity [Unknown]

NARRATIVE: CASE EVENT DATE: 202002
